FAERS Safety Report 18118507 (Version 1)
Quarter: 2020Q3

REPORT INFORMATION
  Report Type: Spontaneous
  Country: JP (occurrence: JP)
  Receive Date: 20200806
  Receipt Date: 20200806
  Transmission Date: 20201103
  Serious: Yes (Other)
  Sender: FDA-Public Use
  Company Number: JP-GLAXOSMITHKLINE-JP2020149179

PATIENT
  Age: 7 Decade
  Sex: Male

DRUGS (3)
  1. ITRIZOLE (ITRACONAZOLE) [Concomitant]
     Indication: PULMONARY MYCOSIS
     Dosage: UNK
     Dates: start: 2020
  2. SERETIDE [Suspect]
     Active Substance: FLUTICASONE PROPIONATE\SALMETEROL XINAFOATE
     Indication: ASTHMA
     Dosage: 500 ?G, 1D
     Route: 055
  3. SPIROPENT [Concomitant]
     Active Substance: CLENBUTEROL HYDROCHLORIDE
     Dosage: UNK

REACTIONS (2)
  - Hypokalaemia [Unknown]
  - Pulmonary mycosis [Unknown]

NARRATIVE: CASE EVENT DATE: 2020
